FAERS Safety Report 4382187-2 (Version None)
Quarter: 2004Q2

REPORT INFORMATION
  Report Type: 
  Country: None (occurrence: None)
  Receive Date: 20040615
  Receipt Date: 20040602
  Transmission Date: 20050107
  Serious: Yes (Other)
  Sender: FDA-Public Use
  Company Number: 2003125459

PATIENT
  Sex: Male
  Weight: 71.2147 kg

DRUGS (6)
  1. NARDIL [Suspect]
     Indication: BIPOLAR DISORDER
     Dosage: UNK (15 MG); ORAL (SEE IMAGE)
     Route: 048
     Dates: start: 19860101
  2. ALL OTHER THERAPEUTIC PRODUCTS (ALL OTHER THERAPEUTIC PRODUCTS) [Suspect]
     Indication: ILL-DEFINED DISORDER
     Dosage: UNK (SEE IMAGE)
     Route: 065
  3. PILOCARPINE HYDROCHLORIDE [Suspect]
     Indication: ILL-DEFINED DISORDER
     Dosage: UNK (SEE IMAGE)
     Route: 065
  4. LITHIUM CARBONATE [Concomitant]
  5. NOVOTHYRAL (LEVOTHYROXINE SODIUM, LIOTHYRONINE SODIUM) [Concomitant]
  6. QUETIAPINE FUMARATE [Concomitant]

REACTIONS (6)
  - ACCIDENT [None]
  - INSOMNIA [None]
  - MEDICATION ERROR [None]
  - TOOTH DISORDER [None]
  - TOOTH LOSS [None]
  - UNEVALUABLE EVENT [None]
